FAERS Safety Report 20362516 (Version 2)
Quarter: 2022Q1

REPORT INFORMATION
  Report Type: Spontaneous
  Country: JP (occurrence: JP)
  Receive Date: 20220121
  Receipt Date: 20220124
  Transmission Date: 20220423
  Serious: Yes (Hospitalization)
  Sender: FDA-Public Use
  Company Number: JP-PFIZER INC-202200051040

PATIENT
  Age: 8 Decade
  Sex: Male
  Weight: 56.1 kg

DRUGS (10)
  1. CELECOXIB [Interacting]
     Active Substance: CELECOXIB
     Indication: Back pain
     Dosage: 200 MG, DAILY
     Route: 048
  2. WARFARIN [Interacting]
     Active Substance: WARFARIN
     Indication: Thrombosis prophylaxis
     Dosage: 0.5 MG, DAILY
     Route: 048
  3. WARFARIN [Interacting]
     Active Substance: WARFARIN
     Indication: Atrial fibrillation
  4. AZILSARTAN KAMEDOXOMIL [Concomitant]
     Active Substance: AZILSARTAN KAMEDOXOMIL
     Dosage: 20 MG, DAILY
     Route: 048
  5. AMLODIPINE [Concomitant]
     Active Substance: AMLODIPINE BESYLATE
     Dosage: 5 MG, DAILY
     Route: 048
  6. VONOPRAZAN [Concomitant]
     Active Substance: VONOPRAZAN
     Dosage: 20 MG, DAILY
     Route: 048
  7. AZOSEMIDE [Concomitant]
     Active Substance: AZOSEMIDE
     Dosage: 30 MG, DAILY
     Route: 048
  8. DIGOXIN [Concomitant]
     Active Substance: DIGOXIN
     Dosage: 0.125 MG, DAILY
     Route: 048
  9. LINAGLIPTIN [Concomitant]
     Active Substance: LINAGLIPTIN
     Dosage: 5 MG, DAILY
     Route: 048
  10. PREGABALIN [Concomitant]
     Active Substance: PREGABALIN
     Dosage: 75 MG, DAILY
     Route: 048

REACTIONS (2)
  - Coagulation time prolonged [Unknown]
  - Drug interaction [Unknown]
